FAERS Safety Report 5597910-9 (Version None)
Quarter: 2007Q4

REPORT INFORMATION
  Report Type: 
  Country: None (occurrence: None)
  Receive Date: 20071221
  Receipt Date: 20071025
  Transmission Date: 20080405
  Serious: Yes (Other)
  Sender: FDA-Public Use
  Company Number: PHEH2007US14129

PATIENT
  Age: 17 Year
  Weight: 45.8 kg

DRUGS (1)
  1. FOCALIN XR [Suspect]
     Dosage: 20 MG

REACTIONS (2)
  - DISTURBANCE IN ATTENTION [None]
  - ILLUSION [None]
